FAERS Safety Report 9324448 (Version 1)
Quarter: 2013Q2

REPORT INFORMATION
  Report Type: Spontaneous
  Country: US (occurrence: None)
  Receive Date: 20130531
  Receipt Date: 20130531
  Transmission Date: 20140414
  Serious: Yes (Death)
  Sender: FDA-Public Use
  Company Number: None

PATIENT
  Age: 75 Year
  Sex: Male

DRUGS (1)
  1. CETUXIMAB [Suspect]
     Indication: COLORECTAL CANCER
     Dosage: 812MG ONCE IV DRIP
     Route: 041
     Dates: start: 20130530, end: 20130530

REACTIONS (1)
  - Anaphylactic reaction [None]
